FAERS Safety Report 6428118-2 (Version None)
Quarter: 2009Q4

REPORT INFORMATION
  Report Type: 
  Country: None (occurrence: None)
  Receive Date: 20091030
  Receipt Date: 20091021
  Transmission Date: 20100525
  Serious: Yes (Hospitalization)
  Sender: FDA-Public Use
  Company Number: GXKR2009KR11536

PATIENT
  Age: 56 Year
  Sex: Male

DRUGS (6)
  1. CLOPIDOGREL [Suspect]
     Indication: ANTIPLATELET THERAPY
  2. ACETYLSALICYLIC ACID SRT [Suspect]
     Dosage: 100 MG,
  3. MUNOBAL (FELODIPINE) [Concomitant]
  4. RAMIPRIL [Concomitant]
  5. CARVEDILOL [Concomitant]
  6. ENDEAVOR STENT (ZOTAROLIMUS) [Concomitant]

REACTIONS (6)
  - ALLODYNIA [None]
  - BACK PAIN [None]
  - EXTRADURAL HAEMATOMA [None]
  - PAIN [None]
  - PARAESTHESIA [None]
  - PERONEAL NERVE PALSY [None]
